FAERS Safety Report 20958043 (Version 1)
Quarter: 2022Q2

REPORT INFORMATION
  Report Type: Spontaneous
  Country: US (occurrence: None)
  Receive Date: 20220613
  Receipt Date: 20220613
  Transmission Date: 20220721
  Serious: Yes (Hospitalization)
  Sender: FDA-Public Use
  Company Number: None

PATIENT

DRUGS (3)
  1. XTANDI [Suspect]
     Active Substance: ENZALUTAMIDE
  2. COSMETICS [Suspect]
     Active Substance: COSMETICS
  3. Xtandi 80MG tablets [Concomitant]

REACTIONS (1)
  - Hospitalisation [None]
